FAERS Safety Report 9364946 (Version 2)
Quarter: 2013Q3

REPORT INFORMATION
  Report Type: Report from Study
  Country: DE (occurrence: DE)
  Receive Date: 20130624
  Receipt Date: 20130927
  Transmission Date: 20140515
  Serious: Yes (Hospitalization)
  Sender: FDA-Public Use
  Company Number: PHHO2013DE008347

PATIENT
  Sex: 0

DRUGS (13)
  1. ACETYLSALICYLIC ACID [Suspect]
     Indication: THROMBOSIS PROPHYLAXIS
     Dosage: 100 MG, QD (1-0-0)
     Dates: start: 199909
  2. BLINDED ALISKIREN [Suspect]
     Indication: CARDIAC FAILURE
     Dosage: CODE NOT BROKEN
     Route: 048
     Dates: start: 20111021, end: 20111028
  3. BLINDED ENALAPRIL [Suspect]
     Indication: CARDIAC FAILURE
     Dosage: CODE NOT BROKEN
     Route: 048
     Dates: start: 20111021, end: 20111028
  4. BLINDED NO TREATMENT RECEIVED [Suspect]
     Indication: CARDIAC FAILURE
     Dosage: CODE NOT BROKEN
     Route: 048
     Dates: start: 20111021, end: 20111028
  5. MARCUMAR [Concomitant]
     Indication: THROMBOSIS PROPHYLAXIS
     Dates: start: 199909
  6. BISOPROLOL [Concomitant]
     Indication: CARDIAC FAILURE CHRONIC
     Dosage: 2.5 MG, QD (1-0-0)
     Dates: start: 199909
  7. FUROSEMID [Concomitant]
     Indication: PROPHYLAXIS
     Dosage: 40 MG, QD (1-0-0)
     Dates: start: 199909
  8. SIMVASTATIN [Concomitant]
     Indication: DYSLIPIDAEMIA
     Dosage: 20 MG, QD (0-0-1)
     Dates: start: 199909
  9. RAMIPRIL [Concomitant]
     Indication: CARDIAC FAILURE CHRONIC
     Dosage: 2.5 MG, QD (1-0-0)
     Dates: start: 199909
  10. ALLOPURINOL [Concomitant]
     Dosage: 100 MG, QD (0-0-1)
  11. MAGNESIUM VERLA [Concomitant]
     Dosage: TID (1-1-1)
  12. SPIRONOLACTONE [Concomitant]
     Dosage: 25 MG, QD
  13. PANTOZOL [Concomitant]
     Dosage: 40 MG, BID ()1-0-1)

REACTIONS (2)
  - Duodenal ulcer [Recovered/Resolved]
  - Gastritis erosive [Recovered/Resolved]
